FAERS Safety Report 6980113-0 (Version None)
Quarter: 2010Q3

REPORT INFORMATION
  Report Type: 
  Country: None (occurrence: None)
  Receive Date: 20100914
  Receipt Date: 20100910
  Transmission Date: 20110219
  Serious: Yes (Other)
  Sender: FDA-Public Use
  Company Number: US-BAYER-201019863BCC

PATIENT
  Age: 69 Year
  Sex: Male

DRUGS (7)
  1. ASPIRIN [Suspect]
     Indication: PRODUCT USED FOR UNKNOWN INDICATION
     Route: 065
     Dates: end: 20100710
  2. ASPIRIN [Suspect]
     Route: 065
     Dates: start: 20100101
  3. PLAVIX [Suspect]
     Indication: ACUTE CORONARY SYNDROME
     Route: 065
     Dates: start: 20091109, end: 20100710
  4. SIMVASTATIN [Concomitant]
     Route: 065
  5. FISH OIL [Concomitant]
     Route: 065
  6. ASCORBIC ACID [Concomitant]
     Route: 065
  7. PROTONIX [Concomitant]
     Route: 065

REACTIONS (5)
  - BALANCE DISORDER [None]
  - BRAIN OEDEMA [None]
  - CEREBRAL HAEMORRHAGE [None]
  - COORDINATION ABNORMAL [None]
  - VISUAL IMPAIRMENT [None]
